FAERS Safety Report 9846150 (Version 1)
Quarter: 2014Q1

REPORT INFORMATION
  Report Type: Spontaneous
  Country: GB (occurrence: None)
  Receive Date: 20140123
  Receipt Date: 20140123
  Transmission Date: 20141002
  Serious: Yes (Other)
  Sender: FDA-Public Use
  Company Number: 2014-000112

PATIENT
  Age: 73 Year
  Sex: Female

DRUGS (6)
  1. DORYX [Suspect]
     Route: 048
     Dates: start: 20131212, end: 20131219
  2. ACETYLSALICYLIC ACID (ACETYLSALICYLIC ACID) [Suspect]
     Route: 048
     Dates: end: 20131219
  3. PREDNISOLONE [Suspect]
     Route: 048
     Dates: start: 20131212, end: 20131219
  4. BENDROFLUMETHIAZIDE (BENDROFLUMETHIAZIDE) [Concomitant]
  5. SERETIDE (FLUTICASONE PROPIONATE, SALMETEROL XINAFOATE) [Concomitant]
  6. SIMVASTATIN (SIMVASTATIN) [Suspect]

REACTIONS (1)
  - Gastrointestinal haemorrhage [None]
